FAERS Safety Report 8439552 (Version 2)
Quarter: 2013Q2

REPORT INFORMATION
  Report Type: Spontaneous
  Country: US (occurrence: None)
  Receive Date: 20120104
  Receipt Date: 20120508
  Transmission Date: 20140414
  Serious: Yes (Other)
  Sender: FDA-Public Use
  Company Number: 2011HGS-002876

PATIENT
  Age: 48 Year
  Sex: Female
  Weight: 106.6 kg

DRUGS (11)
  1. BENLYSTA [Suspect]
     Indication: SYSTEMIC LUPUS ERYTHEMATOSUS
     Dosage: 10 MG/KG, 1 IN 28 D, INTRAVENOUS
     Route: 042
     Dates: start: 20110726
  2. CELLCEPT [Concomitant]
  3. PREDNISONE [Concomitant]
  4. ZANTAC [Concomitant]
  5. ACIPHEX [Concomitant]
  6. FLEXERIL [Concomitant]
  7. NEURONTIN [Concomitant]
  8. INSULIN, REGULAR (INSULIN) [Concomitant]
  9. ASTHMA INHALER (SALBUTAMOL SULFATE) [Concomitant]
  10. BUMEX [Concomitant]
  11. TRAZODONE HYDROCHLORIDE [Concomitant]

REACTIONS (1)
  - Pain [None]
